FAERS Safety Report 14532283 (Version 1)
Quarter: 2018Q1

REPORT INFORMATION
  Report Type: Spontaneous
  Country: US (occurrence: US)
  Receive Date: 20180214
  Receipt Date: 20180214
  Transmission Date: 20180509
  Serious: Yes (Hospitalization, Disabling, Other)
  Sender: FDA-Public Use
  Company Number: US-SA-2018SA027396

PATIENT
  Sex: Female

DRUGS (1)
  1. LEFLUNOMIDE. [Suspect]
     Active Substance: LEFLUNOMIDE
     Indication: RHEUMATOID ARTHRITIS
     Route: 048
     Dates: start: 2015

REACTIONS (17)
  - Rectal haemorrhage [Unknown]
  - Hypoaesthesia [Unknown]
  - Cholelithiasis [Recovered/Resolved]
  - Rheumatoid arthritis [Unknown]
  - Bedridden [Unknown]
  - Foaming at mouth [Unknown]
  - Diarrhoea [Not Recovered/Not Resolved]
  - Vomiting [Unknown]
  - Urethritis [Unknown]
  - Paraesthesia [Unknown]
  - Condition aggravated [Recovered/Resolved]
  - Hypokalaemia [Recovered/Resolved]
  - Infrequent bowel movements [Not Recovered/Not Resolved]
  - Feeling abnormal [Unknown]
  - Abnormal faeces [Not Recovered/Not Resolved]
  - Seizure [Recovered/Resolved]
  - Malaise [Unknown]
